FAERS Safety Report 15502138 (Version 4)
Quarter: 2019Q1

REPORT INFORMATION
  Report Type: Report from Study
  Country: US (occurrence: US)
  Receive Date: 20181015
  Receipt Date: 20190102
  Transmission Date: 20190417
  Serious: Yes (Other)
  Sender: FDA-Public Use
  Company Number: US-AMGEN-USASL2018132744

PATIENT
  Age: 75 Year
  Sex: Female

DRUGS (1)
  1. KYPROLIS [Suspect]
     Active Substance: CARFILZOMIB
     Indication: PLASMA CELL MYELOMA
     Dosage: UNK, TWICE A WEEK FOR 3 WEEKS THEN 1 WEEK OFF
     Route: 042

REACTIONS (13)
  - Myalgia [Recovering/Resolving]
  - Nausea [Recovering/Resolving]
  - Muscle spasms [Unknown]
  - Alopecia [Not Recovered/Not Resolved]
  - Limb discomfort [Not Recovered/Not Resolved]
  - Vomiting [Unknown]
  - Cellulitis [Recovering/Resolving]
  - Bone lesion [Unknown]
  - Infusion site extravasation [Unknown]
  - Joint stiffness [Unknown]
  - Infusion site infection [Unknown]
  - Palpitations [Recovered/Resolved]
  - Chills [Unknown]

NARRATIVE: CASE EVENT DATE: 201810
